FAERS Safety Report 4514041-7 (Version None)
Quarter: 2004Q4

REPORT INFORMATION
  Report Type: 
  Country: None (occurrence: None)
  Receive Date: 20041130
  Receipt Date: 20040910
  Transmission Date: 20050328
  Serious: Yes (Other)
  Sender: FDA-Public Use
  Company Number: US-GLAXOSMITHKLINE-A0525253A

PATIENT
  Sex: Male

DRUGS (4)
  1. LEXIVA [Suspect]
     Indication: HIV INFECTION
     Dosage: 700MG TWICE PER DAY
     Route: 048
     Dates: start: 20040301
  2. NORVIR [Concomitant]
     Indication: HIV INFECTION
     Dates: start: 20040301
  3. VIREAD [Concomitant]
  4. VIRAMUNE [Concomitant]

REACTIONS (8)
  - AMNESIA [None]
  - DISABILITY [None]
  - GAIT DISTURBANCE [None]
  - GENERAL PHYSICAL HEALTH DETERIORATION [None]
  - HYPERSOMNIA [None]
  - IMPAIRED DRIVING ABILITY [None]
  - NEUROSYPHILIS [None]
  - SUDDEN ONSET OF SLEEP [None]
